FAERS Safety Report 6071315-9 (Version None)
Quarter: 2009Q1

REPORT INFORMATION
  Report Type: 
  Country: None (occurrence: None)
  Receive Date: 20090209
  Receipt Date: 20090204
  Transmission Date: 20090719
  Serious: Yes (Hospitalization)
  Sender: FDA-Public Use
  Company Number: GB-MERCK-0902GBR00029

PATIENT

DRUGS (1)
  1. CANCIDAS [Suspect]
     Indication: CANDIDIASIS
     Route: 041
     Dates: start: 20090101, end: 20090201

REACTIONS (1)
  - ANAPHYLACTIC SHOCK [None]
